FAERS Safety Report 16679706 (Version 6)
Quarter: 2019Q4

REPORT INFORMATION
  Report Type: Report from Study
  Country: US (occurrence: US)
  Receive Date: 20190807
  Receipt Date: 20191111
  Transmission Date: 20200122
  Serious: No
  Sender: FDA-Public Use
  Company Number: PHEH2019US032663

PATIENT
  Sex: Female
  Weight: 66.67 kg

DRUGS (2)
  1. OPSUMIT [Concomitant]
     Active Substance: MACITENTAN
     Indication: PRODUCT USED FOR UNKNOWN INDICATION
     Route: 065
  2. TREPROSTINIL. [Suspect]
     Active Substance: TREPROSTINIL
     Indication: PULMONARY ARTERIAL HYPERTENSION
     Dosage: 72 NG/KG/MIN, CONTINUOUS
     Route: 042
     Dates: start: 20190619

REACTIONS (7)
  - Musculoskeletal pain [Unknown]
  - Pain in jaw [Not Recovered/Not Resolved]
  - Catheter site haemorrhage [Unknown]
  - Catheter site pain [Unknown]
  - Pain in extremity [Unknown]
  - Fatigue [Unknown]
  - Arthralgia [Not Recovered/Not Resolved]
